FAERS Safety Report 4396305-3 (Version None)
Quarter: 2004Q3

REPORT INFORMATION
  Report Type: 
  Country: None (occurrence: None)
  Receive Date: 20040713
  Receipt Date: 19980702
  Transmission Date: 20050211
  Serious: Yes (Other)
  Sender: FDA-Public Use
  Company Number: NL-GLAXOSMITHKLINE-B0214356A

PATIENT
  Age: 63 Year
  Sex: Female

DRUGS (6)
  1. AUGMENTIN '125' [Suspect]
     Dosage: 1TAB FOUR TIMES PER DAY
     Route: 048
     Dates: start: 19980315, end: 19980515
  2. PROZAC [Concomitant]
     Dosage: 20MG PER DAY
     Dates: start: 19980501, end: 19980515
  3. ASPIRIN [Concomitant]
     Dosage: 80MG PER DAY
  4. DEPONIT [Concomitant]
     Dosage: 32MG PER DAY
  5. DYTAC [Concomitant]
     Dosage: 50MG TWICE PER DAY
  6. LASIX [Concomitant]
     Dosage: 20MG PER DAY

REACTIONS (8)
  - ABDOMINAL SYMPTOM [None]
  - ANOREXIA [None]
  - CONTUSION [None]
  - CONVULSION [None]
  - DIARRHOEA [None]
  - HEPATIC FUNCTION ABNORMAL [None]
  - HYPONATRAEMIA [None]
  - PURPURA [None]
